FAERS Safety Report 4692555-7 (Version None)
Quarter: 2005Q2

REPORT INFORMATION
  Report Type: 
  Country: None (occurrence: None)
  Receive Date: 20050617
  Receipt Date: 20050607
  Transmission Date: 20051028
  Serious: Yes (Hospitalization)
  Sender: FDA-Public Use
  Company Number: PHEH2005US06402

PATIENT
  Age: 78 Year
  Sex: Female

DRUGS (1)
  1. LOTREL [Suspect]
     Indication: HYPERTENSION
     Dosage: 5 MG AML/20 MG BEN, ONE DOSE
     Route: 048
     Dates: start: 20050601, end: 20050601

REACTIONS (1)
  - HEART RATE INCREASED [None]
